FAERS Safety Report 10173768 (Version 1)
Quarter: 2014Q2

REPORT INFORMATION
  Report Type: Spontaneous
  Country: US (occurrence: None)
  Receive Date: 20140514
  Receipt Date: 20140514
  Transmission Date: 20141212
  Serious: Yes (Hospitalization)
  Sender: FDA-Public Use
  Company Number: None

PATIENT
  Age: 75 Year
  Sex: Female
  Weight: 94.8 kg

DRUGS (1)
  1. BRILINTA [Suspect]
     Indication: STENT PLACEMENT
     Dosage: 1 PILL MORNING AND NIGHT TWICE DAILY TAKEN BY MOUTH
     Route: 048
     Dates: start: 20140421, end: 20140423

REACTIONS (5)
  - Dyspnoea [None]
  - Abdominal pain [None]
  - Chest pain [None]
  - Renal haemorrhage [None]
  - Haemorrhage urinary tract [None]
